FAERS Safety Report 15134760 (Version 1)
Quarter: 2018Q3

REPORT INFORMATION
  Report Type: Spontaneous
  Country: US (occurrence: US)
  Receive Date: 20180712
  Receipt Date: 20180712
  Transmission Date: 20181010
  Serious: No
  Sender: FDA-Public Use
  Company Number: US-CHIESI USA INC-US-CHSI-18-00027

PATIENT
  Age: 58 Year
  Sex: Male

DRUGS (3)
  1. KENGREAL [Suspect]
     Active Substance: CANGRELOR
     Indication: PRODUCT USED FOR UNKNOWN INDICATION
     Dosage: 2 VIALS (100 MG) MIXED IN ONE 250 ML BAG
     Route: 042
     Dates: start: 20180605, end: 20180605
  2. HEPARIN [Concomitant]
     Active Substance: HEPARIN SODIUM
     Indication: PRODUCT USED FOR UNKNOWN INDICATION
     Route: 041
  3. KENGREAL [Suspect]
     Active Substance: CANGRELOR
     Dosage: 1 VIAL (50 MG) IN ONE 250 MG BAG
     Route: 042
     Dates: start: 20180605

REACTIONS (3)
  - No adverse event [Recovered/Resolved]
  - Product preparation error [Recovered/Resolved]
  - Incorrect dose administered [Recovered/Resolved]

NARRATIVE: CASE EVENT DATE: 20180605
